FAERS Safety Report 10149271 (Version 1)
Quarter: 2014Q2

REPORT INFORMATION
  Report Type: Spontaneous
  Country: US (occurrence: None)
  Receive Date: 20140501
  Receipt Date: 20140501
  Transmission Date: 20141212
  Serious: Yes (Hospitalization)
  Sender: FDA-Public Use
  Company Number: None

PATIENT
  Age: 68 Year
  Sex: Female
  Weight: 66.91 kg

DRUGS (24)
  1. OXALIPLATIN [Suspect]
     Indication: PANCREATIC CARCINOMA
     Route: 042
     Dates: start: 20140226
  2. IRINOTECAN [Suspect]
     Route: 042
  3. 5-FU [Suspect]
     Route: 042
  4. LEUCOVORIN 400MG/M2/IV [Suspect]
     Route: 042
  5. AMBIEN [Concomitant]
  6. COMPAZINE [Concomitant]
  7. IMODIUM [Concomitant]
  8. ZOFRAN [Concomitant]
  9. TYLENOL [Concomitant]
  10. MVI [Concomitant]
  11. NORVASC [Concomitant]
  12. LORAZEPAM [Concomitant]
  13. VALIUM [Concomitant]
  14. DECADRON [Concomitant]
  15. DEXLANSOPRAZOLE CPDR [Concomitant]
  16. NYSTATIN [Concomitant]
  17. DEXAMETHASONE [Concomitant]
  18. DIPHENHYDRAMINE [Concomitant]
  19. ELIXIR [Concomitant]
  20. DOXYCYCLINE [Concomitant]
  21. GAVISCON [Concomitant]
  22. HYDROCODONE-ACETAMINOPHEN [Concomitant]
  23. ASPIRIN [Concomitant]
  24. CLOTRIMAZOLE [Concomitant]

REACTIONS (5)
  - Fatigue [None]
  - Diarrhoea [None]
  - Pyrexia [None]
  - Gastroenteritis viral [None]
  - Enterococcal infection [None]
